FAERS Safety Report 5246125-2 (Version None)
Quarter: 2007Q1

REPORT INFORMATION
  Report Type: 
  Country: None (occurrence: None)
  Receive Date: 20070220
  Receipt Date: 20070209
  Transmission Date: 20070707
  Serious: Yes (Death, Hospitalization)
  Sender: FDA-Public Use
  Company Number: 430010M06FRA

PATIENT
  Age: 35 Year
  Sex: Female

DRUGS (8)
  1. NOVANTRONE [Suspect]
     Indication: ACUTE MYELOID LEUKAEMIA
     Dosage: 24 MG, 1 IN 1 DAYS, INTRAVENOUS
     Route: 042
     Dates: start: 20060811, end: 20060813
  2. CYTARABINE [Suspect]
     Indication: ACUTE MYELOID LEUKAEMIA
     Dosage: 2 G, 2 IN 1 DAYS, INTRAVENOUS (NOT OTHERWISE SPECIFIED)
     Route: 042
     Dates: start: 20060811, end: 20060813
  3. BACTRIM [Suspect]
     Indication: INFECTION PROPHYLAXIS
  4. DEXAMETHASONE (DEXAMETHASONE /00016001/) [Suspect]
     Indication: ACUTE MYELOID LEUKAEMIA
  5. GEMTUZUMAB OZOGAMICIN (GEMTUZUMAB OZOGAMICIN) [Suspect]
     Indication: ACUTE MYELOID LEUKAEMIA
     Dosage: 18 MG, 1 IN 1 DAYS, INTRAVENOUS
     Route: 042
     Dates: start: 20060814, end: 20060814
  6. SOLU-MEDROL [Suspect]
     Indication: ACUTE MYELOID LEUKAEMIA
     Dosage: INTRAVENOUS (NOT OTHERWISE SPECIFIED)
     Route: 042
  7. FLUCONAZOLE [Suspect]
     Indication: INFECTION PROPHYLAXIS
  8. VALACYCLOVIR [Suspect]
     Indication: INFECTION PROPHYLAXIS

REACTIONS (7)
  - BACTERAEMIA [None]
  - CARDIAC ARREST [None]
  - CONDITION AGGRAVATED [None]
  - JAUNDICE [None]
  - LEUKOPENIA [None]
  - NEUTROPENIA [None]
  - THROMBOCYTOPENIA [None]
